FAERS Safety Report 18226838 (Version 2)
Quarter: 2020Q3

REPORT INFORMATION
  Report Type: Spontaneous
  Country: US (occurrence: US)
  Receive Date: 20200903
  Receipt Date: 20200911
  Transmission Date: 20201103
  Serious: Yes (Disabling, Other)
  Sender: FDA-Public Use
  Company Number: US-ASTRAZENECA-2020SF11132

PATIENT
  Age: 26681 Day
  Sex: Female
  Weight: 62.6 kg

DRUGS (5)
  1. BETAHYSTINE [Concomitant]
     Indication: MENIERE^S DISEASE
     Dosage: 24.0MG UNKNOWN
  2. BUDESONIDE AND FORMUTEROL FUMORATE DIHYDRATE [Suspect]
     Active Substance: BUDESONIDE\FORMOTEROL FUMARATE DIHYDRATE
     Indication: COUGH
     Dosage: 2 PUFFS TWICE A DAY, TOTAL OF 3 DOSES
     Route: 055
     Dates: start: 20200815, end: 20200816
  3. PREDNISONE. [Suspect]
     Active Substance: PREDNISONE
     Route: 065
  4. ALDACTONE [Concomitant]
     Active Substance: SPIRONOLACTONE
     Indication: MENIERE^S DISEASE
  5. BUDESONIDE AND FORMUTEROL FUMORATE DIHYDRATE [Suspect]
     Active Substance: BUDESONIDE\FORMOTEROL FUMARATE DIHYDRATE
     Indication: BRONCHITIS CHRONIC
     Dosage: 2 PUFFS TWICE A DAY, TOTAL OF 3 DOSES
     Route: 055
     Dates: start: 20200815, end: 20200816

REACTIONS (3)
  - Deafness [Recovering/Resolving]
  - Tinnitus [Recovering/Resolving]
  - Arrhythmia [Unknown]

NARRATIVE: CASE EVENT DATE: 20200815
